FAERS Safety Report 7603074-X (Version None)
Quarter: 2011Q3

REPORT INFORMATION
  Report Type: 
  Country: None (occurrence: None)
  Receive Date: 20110712
  Receipt Date: 20110701
  Transmission Date: 20111222
  Serious: Yes (Other)
  Sender: FDA-Public Use
  Company Number: JP-BRISTOL-MYERS SQUIBB COMPANY-15892250

PATIENT
  Age: 30 Year
  Sex: Male

DRUGS (3)
  1. SEROQUEL [Concomitant]
  2. ABILIFY [Suspect]
     Route: 048
  3. NITRAZEPAM [Concomitant]

REACTIONS (2)
  - PNEUMONIA [None]
  - PYREXIA [None]
